FAERS Safety Report 17894181 (Version 1)
Quarter: 2020Q2

REPORT INFORMATION
  Report Type: Spontaneous
  Country: JP (occurrence: JP)
  Receive Date: 20200615
  Receipt Date: 20200615
  Transmission Date: 20200714
  Serious: Yes (Hospitalization)
  Sender: FDA-Public Use
  Company Number: JP-GLAXOSMITHKLINE-JP2020097055

PATIENT
  Age: 69 Year
  Sex: Male

DRUGS (3)
  1. LAMICTAL [Suspect]
     Active Substance: LAMOTRIGINE
     Indication: BIPOLAR DISORDER
     Dosage: UNK
     Route: 048
  2. OLANZAPINE. [Concomitant]
     Active Substance: OLANZAPINE
  3. LITHIUM CARBONATE. [Concomitant]
     Active Substance: LITHIUM CARBONATE

REACTIONS (2)
  - Rash [Recovered/Resolved]
  - Hospitalisation [Unknown]
